FAERS Safety Report 8112126-X (Version None)
Quarter: 2011Q4

REPORT INFORMATION
  Report Type: 
  Country: None (occurrence: None)
  Receive Date: 20111223
  Receipt Date: 20110131
  Transmission Date: 20120403
  Serious: Yes (Other)
  Sender: FDA-Public Use
  Company Number: PHHY2010US78778

PATIENT
  Age: 71 Year
  Sex: Female
  Weight: 62.1 kg

DRUGS (1)
  1. FEMARA [Suspect]
     Dosage: 2.5 MG, QD, ORAL
     Route: 048
     Dates: end: 20101111

REACTIONS (2)
  - NEOPLASM MALIGNANT [None]
  - METASTASIS [None]
